FAERS Safety Report 5819172-7 (Version None)
Quarter: 2008Q3

REPORT INFORMATION
  Report Type: 
  Country: None (occurrence: None)
  Receive Date: 20080723
  Receipt Date: 20080714
  Transmission Date: 20090109
  Serious: Yes (Other)
  Sender: FDA-Public Use
  Company Number: B0477251A

PATIENT
  Age: 40 Year
  Sex: Male

DRUGS (12)
  1. PAROXETINE HCL [Suspect]
     Indication: DRUG USE FOR UNKNOWN INDICATION
     Dates: start: 19980217
  2. DIAZEPAM [Concomitant]
     Dates: start: 19970212
  3. AMITRIPTYLINE HCL [Concomitant]
     Dates: start: 19970212
  4. PROZAC [Concomitant]
     Dates: start: 20010117
  5. EFFEXOR [Concomitant]
     Dates: start: 20000222
  6. PROTHIADEN [Concomitant]
     Dates: end: 19980201
  7. THIORIDAZINE HCL [Concomitant]
     Indication: ANXIETY
     Dosage: 25MG FOUR TIMES PER DAY
     Dates: start: 20000501
  8. ZOPICLONE [Concomitant]
     Indication: SLEEP DISORDER
     Dosage: 7.5MG AT NIGHT
     Dates: start: 20000501, end: 20050101
  9. PROPRANOLOL [Concomitant]
     Dosage: 20MG THREE TIMES PER DAY
     Dates: start: 20000501
  10. CARBAMAZEPINE [Concomitant]
     Dosage: 100MG TWICE PER DAY
     Dates: start: 20010801
  11. OLANZAPINE [Concomitant]
     Dosage: 5MG AT NIGHT
     Dates: start: 20030101, end: 20060101
  12. BUSPIRONE HCL [Concomitant]
     Indication: ANXIETY
     Dosage: 5MG THREE TIMES PER DAY
     Dates: start: 20031101

REACTIONS (28)
  - AGGRESSION [None]
  - AGITATION [None]
  - BACK PAIN [None]
  - CONCUSSION [None]
  - CONFUSIONAL STATE [None]
  - DEPRESSED MOOD [None]
  - DIARRHOEA [None]
  - DISEASE RECURRENCE [None]
  - DRUG WITHDRAWAL SYNDROME [None]
  - DYSKINESIA [None]
  - DYSPHAGIA [None]
  - ELECTRIC SHOCK [None]
  - FALL [None]
  - FLASHBACK [None]
  - HYPERHIDROSIS [None]
  - ILLUSION [None]
  - INFLUENZA LIKE ILLNESS [None]
  - IRRITABILITY [None]
  - NECK PAIN [None]
  - NIGHTMARE [None]
  - NO THERAPEUTIC RESPONSE [None]
  - OBSESSIVE THOUGHTS [None]
  - PANIC ATTACK [None]
  - PARAESTHESIA [None]
  - POOR QUALITY SLEEP [None]
  - SELF-INJURIOUS IDEATION [None]
  - SENSORY DISTURBANCE [None]
  - SUICIDAL IDEATION [None]
